FAERS Safety Report 5372306-3 (Version None)
Quarter: 2007Q2

REPORT INFORMATION
  Report Type: 
  Country: None (occurrence: None)
  Receive Date: 20070620
  Receipt Date: 20070322
  Transmission Date: 20071010
  Serious: No
  Sender: FDA-Public Use
  Company Number: 2007RL000136

PATIENT
  Age: 63 Year
  Sex: Male
  Weight: 81.6475 kg

DRUGS (1)
  1. OMACOR [Suspect]
     Indication: BLOOD CHOLESTEROL
     Dosage: 2 MG; QD; PO
     Route: 048
     Dates: start: 20061214, end: 20070101

REACTIONS (2)
  - PRURITUS [None]
  - RASH [None]
